FAERS Safety Report 8071471-7 (Version None)
Quarter: 2012Q1

REPORT INFORMATION
  Report Type: 
  Country: None (occurrence: None)
  Receive Date: 20120119
  Receipt Date: 20120109
  Transmission Date: 20120608
  Serious: Yes (Hospitalization)
  Sender: FDA-Public Use
  Company Number: DSM-2012-00023

PATIENT
  Age: 70 Year
  Sex: Female

DRUGS (2)
  1. ALDALIX (SPIRONOLACTONE, FUROSEMIDE) (SPIRONOLACTONE, FUROSEMIDE) [Suspect]
     Indication: PRODUCT USED FOR UNKNOWN INDICATION
     Dosage: ORAL
     Route: 048
  2. AXELER (OLMESARTAN MEDOXOMIL, AMLODIPINE BESILATE (TABLET) (OLMESARTAN [Suspect]
     Indication: PRODUCT USED FOR UNKNOWN INDICATION
     Dosage: ORAL
     Route: 048

REACTIONS (2)
  - HYPERKALAEMIA [None]
  - DRUG INTERACTION [None]
